FAERS Safety Report 12875449 (Version 1)
Quarter: 2016Q4

REPORT INFORMATION
  Report Type: Spontaneous
  Country: FR (occurrence: FR)
  Receive Date: 20161024
  Receipt Date: 20161024
  Transmission Date: 20170207
  Serious: Yes (Hospitalization)
  Sender: FDA-Public Use
  Company Number: FR-ROCHE-1843295

PATIENT
  Age: 7 Year
  Sex: Male
  Weight: 33 kg

DRUGS (12)
  1. AMLOR [Concomitant]
     Active Substance: AMLODIPINE BESYLATE
     Route: 065
  2. PRIVIGEN [Suspect]
     Active Substance: HUMAN IMMUNOGLOBULIN G
     Indication: HYPOGAMMAGLOBULINAEMIA
     Route: 042
     Dates: start: 20160924, end: 20160924
  3. NEORAL [Concomitant]
     Active Substance: CYCLOSPORINE
     Route: 065
  4. HYDROXYZINE HYDROCHLORIDE. [Concomitant]
     Active Substance: HYDROXYZINE HYDROCHLORIDE
  5. CORTANCYL [Concomitant]
     Active Substance: PREDNISONE
     Route: 065
  6. MABTHERA [Suspect]
     Active Substance: RITUXIMAB
     Indication: NEPHROTIC SYNDROME
     Route: 042
     Dates: start: 20160924, end: 20160924
  7. METHYLPREDNISOLONE. [Concomitant]
     Active Substance: METHYLPREDNISOLONE
  8. CELLCEPT [Concomitant]
     Active Substance: MYCOPHENOLATE MOFETIL\MYCOPHENOLATE MOFETIL HYDROCHLORIDE
     Dosage: 1 G/5 ML ORAL SUSPENSION
     Route: 048
  9. PERFALGAN [Concomitant]
     Active Substance: ACETAMINOPHEN
  10. INEXIUM [Concomitant]
     Active Substance: ESOMEPRAZOLE
     Route: 065
  11. POLARAMINE [Concomitant]
     Active Substance: DEXCHLORPHENIRAMINE MALEATE
     Dosage: INJECTABLE SOLUTION 5 MG/1 ML
     Route: 065
  12. CALCIDOSE (FRANCE) [Concomitant]
     Active Substance: CALCIUM CARBONATE
     Route: 065

REACTIONS (6)
  - Product use issue [Unknown]
  - Vomiting [Recovered/Resolved]
  - White blood cell count abnormal [Recovering/Resolving]
  - Pyrexia [Recovering/Resolving]
  - Off label use [Unknown]
  - Headache [Recovered/Resolved]

NARRATIVE: CASE EVENT DATE: 20160924
